FAERS Safety Report 23160349 (Version 1)
Quarter: 2023Q4

REPORT INFORMATION
  Report Type: Spontaneous
  Country: None (occurrence: US)
  Receive Date: 20231108
  Receipt Date: 20231108
  Transmission Date: 20240110
  Serious: No
  Sender: FDA-Public Use
  Company Number: US-Mission Pharmacal Company-2148006

PATIENT
  Age: 21 Year
  Sex: Male

DRUGS (2)
  1. POTASSIUM CITRATE [Suspect]
     Active Substance: POTASSIUM CITRATE
     Indication: Cystinuria
     Route: 048
  2. THIOLA EC [Concomitant]
     Active Substance: TIOPRONIN
     Route: 048
     Dates: start: 20221207

REACTIONS (5)
  - Drug ineffective [Unknown]
  - Crystal urine present [Unknown]
  - Pain [Unknown]
  - Discomfort [Unknown]
  - Urine abnormality [Unknown]
